FAERS Safety Report 22781202 (Version 4)
Quarter: 2023Q4

REPORT INFORMATION
  Report Type: Report from Study
  Country: CA (occurrence: CA)
  Receive Date: 20230803
  Receipt Date: 20231128
  Transmission Date: 20240110
  Serious: Yes (Other)
  Sender: FDA-Public Use
  Company Number: CA-002147023-NVSC2022CA173422

PATIENT
  Age: 52 Year
  Sex: Male

DRUGS (13)
  1. COSENTYX [Suspect]
     Active Substance: SECUKINUMAB
     Indication: Psoriasis
     Dosage: 300 MG, Q3W
     Route: 058
     Dates: start: 20211122
  2. COSENTYX [Suspect]
     Active Substance: SECUKINUMAB
     Indication: Psoriatic arthropathy
     Dosage: 300 MG, Q3W
     Route: 058
     Dates: start: 20220909
  3. COSENTYX [Suspect]
     Active Substance: SECUKINUMAB
     Dosage: UNK
     Route: 065
     Dates: start: 20230117
  4. COSENTYX [Suspect]
     Active Substance: SECUKINUMAB
     Dosage: 300 MG, Q2W
     Route: 058
  5. PREDNISONE [Concomitant]
     Active Substance: PREDNISONE
     Indication: Product used for unknown indication
     Dosage: UNK, OTHER
     Route: 048
     Dates: start: 1990
  6. MELOXICAM [Concomitant]
     Active Substance: MELOXICAM
     Indication: Product used for unknown indication
     Dosage: UNK, BID
     Route: 048
     Dates: start: 2021
  7. SUBOXONE [Concomitant]
     Active Substance: BUPRENORPHINE HYDROCHLORIDE\NALOXONE HYDROCHLORIDE
     Indication: Product used for unknown indication
     Dosage: UNK
     Route: 048
     Dates: start: 2019
  8. BUPRENORPHINE [Concomitant]
     Active Substance: BUPRENORPHINE
     Indication: Product used for unknown indication
     Dosage: UNK
     Route: 061
     Dates: start: 2018
  9. ORENCIA [Concomitant]
     Active Substance: ABATACEPT
     Indication: Product used for unknown indication
     Dosage: UNK, QW
     Route: 058
     Dates: start: 202104
  10. IBUPROFEN [Concomitant]
     Active Substance: IBUPROFEN
     Indication: Product used for unknown indication
     Dosage: UNK, OTHER
     Route: 048
  11. ACITRETIN [Concomitant]
     Active Substance: ACITRETIN
     Indication: Product used for unknown indication
     Dosage: UNK
     Route: 065
     Dates: start: 202106, end: 202111
  12. ENSTILAR [Concomitant]
     Active Substance: BETAMETHASONE DIPROPIONATE\CALCIPOTRIENE HYDRATE
     Indication: Product used for unknown indication
     Dosage: UNK
     Route: 065
  13. UPADACITINIB [Concomitant]
     Active Substance: UPADACITINIB
     Indication: Product used for unknown indication
     Dosage: UNK, QD
     Route: 048
     Dates: start: 2020, end: 2021

REACTIONS (11)
  - Rheumatoid arthritis [Unknown]
  - Psoriatic arthropathy [Unknown]
  - Skin exfoliation [Recovered/Resolved]
  - Musculoskeletal stiffness [Unknown]
  - Pain [Unknown]
  - Arthralgia [Unknown]
  - Injection site pain [Unknown]
  - Sexual dysfunction [Unknown]
  - Psoriasis [Unknown]
  - Pruritus [Unknown]
  - Product use issue [Unknown]
